FAERS Safety Report 16584706 (Version 1)
Quarter: 2019Q3

REPORT INFORMATION
  Report Type: Spontaneous
  Country: US (occurrence: US)
  Receive Date: 20190717
  Receipt Date: 20190717
  Transmission Date: 20191004
  Serious: Yes (Hospitalization)
  Sender: FDA-Public Use
  Company Number: US-TARO PHARMACEUTICALS USA.,INC-2019SUN00319

PATIENT
  Age: 74 Year
  Sex: Male

DRUGS (3)
  1. NORTRIPTYLINE HYDROCHLORIDE. [Suspect]
     Active Substance: NORTRIPTYLINE HYDROCHLORIDE
     Indication: MENTAL DISORDER
     Dosage: 25 MG, TID
     Route: 065
  2. PRAZOSIN. [Concomitant]
     Active Substance: PRAZOSIN
     Indication: PRODUCT USED FOR UNKNOWN INDICATION
     Dosage: 2 MG, EVERY NIGHT AT BED TIME
     Route: 065
  3. FIORICET [Concomitant]
     Active Substance: ACETAMINOPHEN\BUTALBITAL\CAFFEINE
     Indication: HEADACHE
     Dosage: UNK
     Route: 065

REACTIONS (7)
  - Euphoric mood [Unknown]
  - Drug abuse [Unknown]
  - Fall [Unknown]
  - Labelled drug-food interaction medication error [Unknown]
  - Contusion [Unknown]
  - Skin laceration [Unknown]
  - Alcohol poisoning [Unknown]
